FAERS Safety Report 9613765 (Version 1)
Quarter: 2013Q4

REPORT INFORMATION
  Report Type: Spontaneous
  Country: KR (occurrence: KR)
  Receive Date: 20131010
  Receipt Date: 20131010
  Transmission Date: 20140711
  Serious: Yes (Other)
  Sender: FDA-Public Use
  Company Number: PHHY2013KR113830

PATIENT
  Sex: Male

DRUGS (1)
  1. TRILEPTAL [Suspect]
     Dosage: 1050 MG, (450 MG IN MORNING AND 600 MG AT NIGHT)
     Route: 048

REACTIONS (1)
  - Grand mal convulsion [Unknown]
